FAERS Safety Report 8905667 (Version 1)
Quarter: 2012Q4

REPORT INFORMATION
  Report Type: 
  Country: US (occurrence: US)
  Receive Date: 20121109
  Receipt Date: 20121109
  Transmission Date: 20130627
  Serious: Yes (Hospitalization)
  Sender: FDA-Public Use
  Company Number: US-B.I. PHARMACEUTICALS,INC./RIDGEFIELD-2012-BP-27305BP

PATIENT
  Sex: Female

DRUGS (1)
  1. DULCOLAX TABLETS [Suspect]

REACTIONS (2)
  - Abdominal pain upper [Unknown]
  - Abdominal hernia [Unknown]
